FAERS Safety Report 18371446 (Version 7)
Quarter: 2021Q1

REPORT INFORMATION
  Report Type: Report from Study
  Country: JP (occurrence: JP)
  Receive Date: 20201012
  Receipt Date: 20210201
  Transmission Date: 20210419
  Serious: Yes (Hospitalization, Other)
  Sender: FDA-Public Use
  Company Number: JP-JNJFOC-20201006850

PATIENT
  Age: 62 Year
  Sex: Male
  Weight: 64.7 kg

DRUGS (29)
  1. NEXIUM [Concomitant]
     Active Substance: ESOMEPRAZOLE MAGNESIUM
     Indication: COLITIS ULCERATIVE
     Route: 048
  2. SCOPOLAMINE BUTYLBROMIDE [Concomitant]
     Active Substance: SCOPOLAMINE
     Indication: COLONOSCOPY
     Route: 042
     Dates: start: 20170223, end: 20170223
  3. PETHIDINE HYDROCHLORIDE [Concomitant]
     Active Substance: MEPERIDINE HYDROCHLORIDE
     Route: 042
     Dates: start: 20161201, end: 20161201
  4. MIYA?BM [Concomitant]
     Active Substance: CLOSTRIDIUM BUTYRICUM SPORES STRAIN M-55
     Indication: COLITIS ULCERATIVE
     Route: 048
  5. ADALAT CC [Concomitant]
     Active Substance: NIFEDIPINE
     Indication: HYPERTENSION
     Route: 048
  6. HORIZON [Concomitant]
     Active Substance: DIAZEPAM
     Route: 042
     Dates: start: 20161201, end: 20161201
  7. PETHIDINE HYDROCHLORIDE [Concomitant]
     Active Substance: MEPERIDINE HYDROCHLORIDE
     Indication: COLONOSCOPY
     Route: 042
     Dates: start: 20170223, end: 20170223
  8. PETHIDINE HYDROCHLORIDE [Concomitant]
     Active Substance: MEPERIDINE HYDROCHLORIDE
     Route: 042
     Dates: start: 20170223, end: 20170223
  9. PETHIDINE HYDROCHLORIDE [Concomitant]
     Active Substance: MEPERIDINE HYDROCHLORIDE
     Route: 042
     Dates: start: 20161006, end: 20170223
  10. MAGCOROL P [Concomitant]
     Active Substance: MAGNESIUM CITRATE
     Route: 048
     Dates: start: 20171005, end: 20171005
  11. MAGCOROL P [Concomitant]
     Active Substance: MAGNESIUM CITRATE
     Route: 048
     Dates: start: 20201224
  12. SCOPOLAMINE BUTYLBROMIDE [Concomitant]
     Active Substance: SCOPOLAMINE
     Route: 042
     Dates: start: 20170223, end: 20170223
  13. SCOPOLAMINE BUTYLBROMIDE [Concomitant]
     Active Substance: SCOPOLAMINE
     Route: 042
     Dates: start: 20170223, end: 20170223
  14. HORIZON [Concomitant]
     Active Substance: DIAZEPAM
     Route: 042
     Dates: start: 20170223, end: 20170223
  15. USTEKINUMAB [Suspect]
     Active Substance: USTEKINUMAB
     Indication: COLITIS ULCERATIVE
     Route: 042
     Dates: start: 20160808
  16. MAGCOROL P [Concomitant]
     Active Substance: MAGNESIUM CITRATE
     Route: 048
     Dates: start: 20161006, end: 20161006
  17. USTEKINUMAB [Suspect]
     Active Substance: USTEKINUMAB
     Indication: COLITIS ULCERATIVE
     Route: 058
     Dates: end: 20200903
  18. MAGCOROL P [Concomitant]
     Active Substance: MAGNESIUM CITRATE
     Indication: COLONOSCOPY
     Route: 048
     Dates: start: 20170223, end: 20170223
  19. MAGCOROL P [Concomitant]
     Active Substance: MAGNESIUM CITRATE
     Route: 048
     Dates: start: 20200924, end: 20200924
  20. MAGCOROL P [Concomitant]
     Active Substance: MAGNESIUM CITRATE
     Route: 048
     Dates: start: 20161201, end: 20200924
  21. SCOPOLAMINE BUTYLBROMIDE [Concomitant]
     Active Substance: SCOPOLAMINE
     Route: 042
     Dates: start: 20171005, end: 20171005
  22. HORIZON [Concomitant]
     Active Substance: DIAZEPAM
     Indication: COLONOSCOPY
     Route: 042
     Dates: start: 20170223, end: 20170223
  23. HORIZON [Concomitant]
     Active Substance: DIAZEPAM
     Route: 042
     Dates: start: 20161201, end: 20161201
  24. AZANIN [Concomitant]
     Active Substance: AZATHIOPRINE
     Indication: COLITIS ULCERATIVE
     Route: 048
  25. SCOPOLAMINE BUTYLBROMIDE [Concomitant]
     Active Substance: SCOPOLAMINE
     Route: 042
     Dates: start: 20161201, end: 20161201
  26. HORIZON [Concomitant]
     Active Substance: DIAZEPAM
     Route: 042
     Dates: start: 20200924, end: 20200924
  27. OLMETEC [Concomitant]
     Active Substance: OLMESARTAN MEDOXOMIL
     Indication: HYPERTENSION
     Route: 048
     Dates: start: 20171229
  28. SCOPOLAMINE BUTYLBROMIDE [Concomitant]
     Active Substance: SCOPOLAMINE
     Route: 042
     Dates: start: 20200924, end: 20200924
  29. PETHIDINE HYDROCHLORIDE [Concomitant]
     Active Substance: MEPERIDINE HYDROCHLORIDE
     Route: 042
     Dates: start: 20200924, end: 20200924

REACTIONS (1)
  - Rectal cancer [Not Recovered/Not Resolved]

NARRATIVE: CASE EVENT DATE: 20200924
